FAERS Safety Report 8433255-7 (Version None)
Quarter: 2012Q2

REPORT INFORMATION
  Report Type: 
  Country: None (occurrence: None)
  Receive Date: 20120613
  Receipt Date: 20120606
  Transmission Date: 20120825
  Serious: No
  Sender: FDA-Public Use
  Company Number: US-PFIZER INC-2012136564

PATIENT
  Sex: Female

DRUGS (2)
  1. PREMPRO [Suspect]
     Dosage: 0.625/2.5MG, UNK
  2. PREMPHASE 14/14 [Suspect]
     Dosage: UNK

REACTIONS (1)
  - MEDICATION RESIDUE [None]
